FAERS Safety Report 13658938 (Version 1)
Quarter: 2017Q2

REPORT INFORMATION
  Report Type: Spontaneous
  Country: US (occurrence: US)
  Receive Date: 20170615
  Receipt Date: 20170615
  Transmission Date: 20170830
  Serious: Yes (Death)
  Sender: FDA-Public Use
  Company Number: None

PATIENT
  Age: 66 Year
  Sex: Female

DRUGS (1)
  1. ADCIRCA [Suspect]
     Active Substance: TADALAFIL
     Indication: PULMONARY ARTERIAL HYPERTENSION
     Dosage: DATE OF EVENT PROVIDED 15-JUN-2017 (AFTER DEATH DATE)
     Route: 048
     Dates: start: 20100810, end: 201706

REACTIONS (1)
  - Death [None]

NARRATIVE: CASE EVENT DATE: 201706
